FAERS Safety Report 6851181-1 (Version None)
Quarter: 2010Q3

REPORT INFORMATION
  Report Type: 
  Country: None (occurrence: None)
  Receive Date: 20100716
  Receipt Date: 20100712
  Transmission Date: 20110219
  Serious: Yes (Other)
  Sender: FDA-Public Use
  Company Number: US-AMGEN-US293455

PATIENT
  Sex: Male

DRUGS (3)
  1. ROMIPLOSTIM [Suspect]
     Indication: MYELODYSPLASTIC SYNDROME
     Route: 058
     Dates: start: 20080331, end: 20080623
  2. VIDAZA [Concomitant]
     Route: 065
     Dates: start: 20080331
  3. ZOFRAN [Concomitant]

REACTIONS (2)
  - BONE PAIN [None]
  - MYELOFIBROSIS [None]
